FAERS Safety Report 10147460 (Version 2)
Quarter: 2014Q2

REPORT INFORMATION
  Report Type: Spontaneous
  Country: US (occurrence: US)
  Receive Date: 20140501
  Receipt Date: 20140604
  Transmission Date: 20141212
  Serious: Yes (Other)
  Sender: FDA-Public Use
  Company Number: US-ALLERGAN-1408364US

PATIENT
  Age: 90 Year
  Sex: Female

DRUGS (2)
  1. RESTASIS [Suspect]
     Indication: DRY EYE
     Dosage: 2 GTT, SINGLE
     Route: 047
     Dates: start: 20140424, end: 20140424
  2. LUMIGAN [Concomitant]
     Indication: GLAUCOMA
     Dosage: UNK

REACTIONS (6)
  - Dyspnoea [Unknown]
  - Oxygen saturation decreased [Unknown]
  - Blood pressure increased [Unknown]
  - Anxiety [Unknown]
  - Oropharyngeal pain [Unknown]
  - Eye irritation [Recovering/Resolving]
